FAERS Safety Report 4339854-6 (Version None)
Quarter: 2004Q2

REPORT INFORMATION
  Report Type: 
  Country: None (occurrence: None)
  Receive Date: 20040415
  Receipt Date: 20040415
  Transmission Date: 20050107
  Serious: Yes (Hospitalization)
  Sender: FDA-Public Use
  Company Number: None

PATIENT
  Age: 17 Year
  Sex: Male
  Weight: 72.1219 kg

DRUGS (2)
  1. IBUPROFEN [Suspect]
     Indication: INFLAMMATION
     Dosage: 800 MG 2-3/ DAY
     Dates: start: 20040305, end: 20040316
  2. IBUPROFEN [Suspect]
     Indication: PAIN
     Dosage: 800 MG 2-3/ DAY
     Dates: start: 20040305, end: 20040316

REACTIONS (1)
  - HEPATOTOXICITY [None]
